FAERS Safety Report 18191628 (Version 1)
Quarter: 2020Q3

REPORT INFORMATION
  Report Type: Spontaneous
  Country: FR (occurrence: FR)
  Receive Date: 20200825
  Receipt Date: 20200825
  Transmission Date: 20201103
  Serious: Yes (Other)
  Sender: FDA-Public Use
  Company Number: FR-ACCORD-196729

PATIENT
  Age: 59 Year
  Sex: Male
  Weight: 81.9 kg

DRUGS (13)
  1. VORICONAZOLE. [Interacting]
     Active Substance: VORICONAZOLE
     Indication: ASPERGILLUS INFECTION
     Route: 048
     Dates: start: 20200427, end: 20200710
  2. WARFARIN [Interacting]
     Active Substance: WARFARIN
     Indication: ANTIPHOSPHOLIPID SYNDROME
     Route: 048
     Dates: start: 20200526
  3. SODIUM BICARBONATE. [Concomitant]
     Active Substance: SODIUM BICARBONATE
  4. ATORVASTATIN/ATORVASTATIN CALCIUM [Interacting]
     Active Substance: ATORVASTATIN CALCIUM
     Indication: DYSLIPIDAEMIA
     Route: 048
  5. ENVARSUS XR [Suspect]
     Active Substance: TACROLIMUS
     Indication: RENAL TRANSPLANT
     Dosage: STRENGTH: 1 MG
     Route: 048
     Dates: start: 20190410
  6. BISOPROLOL [Concomitant]
     Active Substance: BISOPROLOL
  7. ZYMAD [Concomitant]
     Active Substance: CHOLECALCIFEROL
  8. FUROSEMIDE. [Suspect]
     Active Substance: FUROSEMIDE
     Indication: HYPERTENSION
     Route: 048
  9. AMLODIPINE [Suspect]
     Active Substance: AMLODIPINE BESYLATE
     Indication: HYPERTENSION
     Route: 048
  10. KAYEXALATE [Concomitant]
     Active Substance: SODIUM POLYSTYRENE SULFONATE
  11. PREDNISONE. [Concomitant]
     Active Substance: PREDNISONE
  12. MIMPARA [Concomitant]
     Active Substance: CINACALCET HYDROCHLORIDE
  13. PANTOPRAZOLE [Concomitant]
     Active Substance: PANTOPRAZOLE

REACTIONS (7)
  - Erythema [Recovering/Resolving]
  - Lip ulceration [Recovering/Resolving]
  - Photosensitivity reaction [Recovering/Resolving]
  - Drug interaction [Unknown]
  - Hypoprothrombinaemia [Recovered/Resolved]
  - Burns second degree [Recovering/Resolving]
  - Muscle spasms [Recovered/Resolved]

NARRATIVE: CASE EVENT DATE: 20200427
